FAERS Safety Report 4805391-5 (Version None)
Quarter: 2005Q4

REPORT INFORMATION
  Report Type: 
  Country: None (occurrence: None)
  Receive Date: 20051017
  Receipt Date: 20051005
  Transmission Date: 20060501
  Serious: Yes (Other)
  Sender: FDA-Public Use
  Company Number: 2005138359

PATIENT
  Age: 55 Year
  Sex: Male
  Weight: 113.3993 kg

DRUGS (8)
  1. UNISOM [Suspect]
     Dosage: 2, THEN INCREASED TO 8 TABS NIGHTLY, ORAL
     Route: 048
     Dates: start: 20040601
  2. BLACK CHERRY CONCENTRATE [Concomitant]
  3. SARATROL [Concomitant]
  4. MULTIVITAMIN AND MINERAL SUPPLEMENT (MINERALS NOS, VITAMINS NOS) [Concomitant]
  5. EXCEDRIN (MIGRAINE) [Concomitant]
  6. ZOLPIDEM TARTRATE [Concomitant]
  7. PREDNISONE [Concomitant]
  8. VALPROATE SODIUM [Concomitant]

REACTIONS (3)
  - DRUG DEPENDENCE [None]
  - DRUG INEFFECTIVE [None]
  - FATIGUE [None]
